FAERS Safety Report 19433574 (Version 1)
Quarter: 2021Q2

REPORT INFORMATION
  Report Type: Spontaneous
  Country: US (occurrence: US)
  Receive Date: 20210617
  Receipt Date: 20210617
  Transmission Date: 20210717
  Serious: Yes (Other)
  Sender: FDA-Public Use
  Company Number: None

PATIENT
  Age: 66 Year
  Sex: Female
  Weight: 90.26 kg

DRUGS (2)
  1. VENTOLIN HFA [Suspect]
     Active Substance: ALBUTEROL SULFATE
     Indication: ASTHMA
     Dosage: ?          OTHER FREQUENCY:Q 4?6 HR;?
     Route: 055
     Dates: start: 20210309, end: 20210504
  2. PROAIR HFA [Suspect]
     Active Substance: ALBUTEROL SULFATE
     Indication: ASTHMA
     Dosage: ?          OTHER FREQUENCY:Q 4?6 HR;?
     Route: 055
     Dates: start: 20210518, end: 20210604

REACTIONS (3)
  - Chest discomfort [None]
  - Paradoxical drug reaction [None]
  - Dyspnoea [None]
